FAERS Safety Report 23012095 (Version 2)
Quarter: 2024Q1

REPORT INFORMATION
  Report Type: Report from Study
  Country: UY (occurrence: UY)
  Receive Date: 20230930
  Receipt Date: 20240104
  Transmission Date: 20240410
  Serious: Yes (Other)
  Sender: FDA-Public Use
  Company Number: UY-ABBVIE-5426439

PATIENT
  Age: 64 Year
  Sex: Female

DRUGS (1)
  1. HUMIRA [Suspect]
     Active Substance: ADALIMUMAB
     Indication: Rheumatoid arthritis
     Dosage: FORM STRENGTH: 40 MG
     Route: 058
     Dates: start: 20210106

REACTIONS (4)
  - Breast neoplasm [Not Recovered/Not Resolved]
  - Breast pain [Not Recovered/Not Resolved]
  - Breast cancer [Unknown]
  - Scar [Unknown]

NARRATIVE: CASE EVENT DATE: 20230701
